FAERS Safety Report 9924940 (Version 1)
Quarter: 2014Q1

REPORT INFORMATION
  Report Type: Spontaneous
  Country: JP (occurrence: None)
  Receive Date: 20140221
  Receipt Date: 20140221
  Transmission Date: 20141002
  Serious: Yes (Other)
  Sender: FDA-Public Use
  Company Number: 2014P1001319

PATIENT
  Age: 55 Year
  Sex: Male

DRUGS (2)
  1. ISONIAZID [Suspect]
     Indication: PULMONARY TUBERCULOSIS
  2. ISONIAZID [Suspect]
     Indication: PYREXIA

REACTIONS (2)
  - Feeling drunk [None]
  - Drug level increased [None]
